FAERS Safety Report 5898833-8 (Version None)
Quarter: 2008Q3

REPORT INFORMATION
  Report Type: 
  Country: None (occurrence: None)
  Receive Date: 20080925
  Receipt Date: 20080819
  Transmission Date: 20090109
  Serious: No
  Sender: FDA-Public Use
  Company Number: A0738265A

PATIENT
  Sex: Male

DRUGS (3)
  1. WELLBUTRIN XL [Suspect]
     Route: 048
     Dates: start: 20080522, end: 20080601
  2. PAXIL [Suspect]
     Route: 065
  3. LAMICTAL [Concomitant]
     Route: 065

REACTIONS (2)
  - ALOPECIA [None]
  - SEXUAL DYSFUNCTION [None]
